FAERS Safety Report 21191192 (Version 1)
Quarter: 2022Q3

REPORT INFORMATION
  Report Type: Spontaneous
  Country: US (occurrence: US)
  Receive Date: 20220809
  Receipt Date: 20220809
  Transmission Date: 20221027
  Serious: Yes (Death, Other)
  Sender: FDA-Public Use
  Company Number: US-SA-SAC20220808000857

PATIENT
  Age: 76 Year
  Sex: Female

DRUGS (1)
  1. ZANTAC [Suspect]
     Active Substance: RANITIDINE HYDROCHLORIDE
     Indication: Hyperchlorhydria
     Dosage: FREQUENCY :OTHER
     Dates: start: 200201, end: 201801

REACTIONS (3)
  - Hepatic cancer [Fatal]
  - Pancreatic carcinoma stage IV [Fatal]
  - Gastric cancer [Fatal]

NARRATIVE: CASE EVENT DATE: 20180621
